FAERS Safety Report 4991140-7 (Version None)
Quarter: 2006Q1

REPORT INFORMATION
  Report Type: 
  Country: None (occurrence: None)
  Receive Date: 20060314
  Receipt Date: 20051223
  Transmission Date: 20060701
  Serious: No
  Sender: FDA-Public Use
  Company Number: 2005-02643

PATIENT
  Sex: Male

DRUGS (2)
  1. VELCADE [Suspect]
     Indication: MULTIPLE MYELOMA
     Dates: start: 20050601
  2. DEXAMETHASONE TAB [Concomitant]

REACTIONS (2)
  - AORTIC DILATATION [None]
  - AORTIC VALVE INCOMPETENCE [None]
